FAERS Safety Report 5744533-4 (Version None)
Quarter: 2008Q2

REPORT INFORMATION
  Report Type: 
  Country: None (occurrence: None)
  Receive Date: 20080516
  Receipt Date: 20080430
  Transmission Date: 20081010
  Serious: Yes (Hospitalization)
  Sender: FDA-Public Use
  Company Number: 2008AL002967

PATIENT
  Sex: Female

DRUGS (1)
  1. DIGOXIN [Suspect]
     Indication: CORONARY ARTERY DISEASE
     Dosage: 0.25MG DAILY PO
     Route: 048

REACTIONS (2)
  - ANGINA PECTORIS [None]
  - THERAPEUTIC AGENT TOXICITY [None]
